FAERS Safety Report 14053534 (Version 1)
Quarter: 2017Q4

REPORT INFORMATION
  Report Type: Spontaneous
  Country: US (occurrence: US)
  Receive Date: 20171006
  Receipt Date: 20171006
  Transmission Date: 20180321
  Serious: No
  Sender: FDA-Public Use
  Company Number: US-JNJFOC-20170807028

PATIENT
  Age: 6 Decade
  Sex: Female
  Weight: 74.84 kg

DRUGS (5)
  1. TYLENOL WITH CODEINE [Suspect]
     Active Substance: ACETAMINOPHEN\CODEINE PHOSPHATE
     Indication: PAIN
     Dosage: FREQUENCY: EVERY 5-6 HOURS
     Route: 065
  2. CYCLOBENZAPRINE. [Concomitant]
     Active Substance: CYCLOBENZAPRINE
     Indication: PRODUCT USED FOR UNKNOWN INDICATION
     Route: 065
  3. LYRICA [Concomitant]
     Active Substance: PREGABALIN
     Indication: PAIN
     Route: 048
     Dates: start: 201704
  4. GABAPENTIN. [Concomitant]
     Active Substance: GABAPENTIN
     Indication: PERONEAL NERVE PALSY
     Route: 048
     Dates: start: 201704
  5. GABAPENTIN. [Concomitant]
     Active Substance: GABAPENTIN
     Indication: PERONEAL NERVE PALSY
     Route: 048

REACTIONS (1)
  - Drug ineffective [Unknown]
